FAERS Safety Report 8557638-X (Version None)
Quarter: 2012Q3

REPORT INFORMATION
  Report Type: 
  Country: None (occurrence: None)
  Receive Date: 20120801
  Receipt Date: 20120724
  Transmission Date: 20120928
  Serious: Yes (Hospitalization)
  Sender: FDA-Public Use
  Company Number: US-ALEXION-A201201195

PATIENT
  Sex: Female
  Weight: 113 kg

DRUGS (10)
  1. VANCOMYCIN [Suspect]
     Indication: ANTIBIOTIC THERAPY
     Dosage: UNK
     Dates: end: 20120101
  2. WARFARIN [Concomitant]
     Dosage: 5 MG, QD ON WEDNESDAY AND FRIDAY
  3. TACROLIMUS [Concomitant]
     Indication: LIVER TRANSPLANT
     Dosage: 0.5 MG, BID TAKE 2 CAPS IN AM + 1 CAP IN PM
     Route: 048
     Dates: start: 20120607
  4. SENOKOT [Concomitant]
     Indication: CONSTIPATION
     Dosage: 8.6 MG, QD QHS OTC
     Route: 048
     Dates: start: 20101112
  5. SOLIRIS [Suspect]
     Indication: PAROXYSMAL NOCTURNAL HAEMOGLOBINURIA
     Dosage: 900 MG, Q2W
     Route: 042
     Dates: start: 20090901
  6. MULTI-VITAMIN [Concomitant]
     Indication: SUPPLEMENTATION THERAPY
     Dosage: 1 TAB QD
     Route: 048
     Dates: start: 20101112
  7. TYLENOL (CAPLET) [Concomitant]
     Dosage: 325 MG, PRN
     Dates: start: 20101112
  8. WARFARIN [Concomitant]
     Indication: THROMBOSIS
     Dosage: 7.5 MG, QD ON SUNDAY, MONDAY, TUESDAY, THURSDAY, AND SATURDAY (5 MG TAB)
     Dates: start: 20120327
  9. MAGNESIUM OXIDE [Concomitant]
     Indication: BLOOD MAGNESIUM DECREASED
     Dosage: 400 MG, BID
     Route: 048
     Dates: start: 20120703
  10. PRILOSEC [Concomitant]
     Indication: GASTROOESOPHAGEAL REFLUX DISEASE
     Dosage: 20 MG, QD QHS OTC
     Route: 048
     Dates: start: 20101112

REACTIONS (2)
  - NONSPECIFIC REACTION [None]
  - STAPHYLOCOCCAL INFECTION [None]
